FAERS Safety Report 7951454-5 (Version None)
Quarter: 2011Q4

REPORT INFORMATION
  Report Type: 
  Country: None (occurrence: None)
  Receive Date: 20111201
  Receipt Date: 20111123
  Transmission Date: 20120403
  Serious: Yes (Death)
  Sender: FDA-Public Use
  Company Number: ES-JNJFOC-20110711226

PATIENT
  Sex: Female
  Weight: 70 kg

DRUGS (1)
  1. USTEKINUMAB [Suspect]
     Indication: PSORIASIS
     Route: 058
     Dates: start: 20091104, end: 20110411

REACTIONS (2)
  - LUNG NEOPLASM [None]
  - PANCREATIC CARCINOMA [None]
